FAERS Safety Report 24789498 (Version 1)
Quarter: 2024Q4

REPORT INFORMATION
  Report Type: Spontaneous
  Country: JP (occurrence: JP)
  Receive Date: 20241230
  Receipt Date: 20241230
  Transmission Date: 20250114
  Serious: Yes (Other)
  Sender: MERCK
  Company Number: JP-MSD-M2024-33506

PATIENT
  Age: 41 Year
  Sex: Female

DRUGS (1)
  1. KEYTRUDA [Suspect]
     Active Substance: PEMBROLIZUMAB
     Indication: Malignant melanoma stage II
     Dosage: 200 MILLIGRAM, Q3W
     Route: 041
     Dates: start: 20240730, end: 2024

REACTIONS (3)
  - Immune-mediated hyperthyroidism [Recovered/Resolved]
  - Immune-mediated hepatic disorder [Recovering/Resolving]
  - Thyroid function test abnormal [Unknown]

NARRATIVE: CASE EVENT DATE: 20240815
